FAERS Safety Report 17023537 (Version 2)
Quarter: 2024Q1

REPORT INFORMATION
  Report Type: Spontaneous
  Country: ES (occurrence: ES)
  Receive Date: 20191112
  Receipt Date: 20240305
  Transmission Date: 20240410
  Serious: Yes (Other)
  Sender: FDA-Public Use
  Company Number: ES-MYLANLABS-2019M1100359

PATIENT
  Age: 57 Year
  Sex: Male

DRUGS (15)
  1. OXALIPLATIN [Suspect]
     Active Substance: OXALIPLATIN
     Indication: Adenocarcinoma of colon
     Dosage: 3 UNK, CYCLICAL
     Route: 065
  2. OXALIPLATIN [Suspect]
     Active Substance: OXALIPLATIN
     Dosage: 7 MILLIGRAM
     Route: 065
  3. OXALIPLATIN [Suspect]
     Active Substance: OXALIPLATIN
     Dosage: 6 UNK, CYCLICAL
     Route: 065
     Dates: start: 2014
  4. OXALIPLATIN [Suspect]
     Active Substance: OXALIPLATIN
     Dosage: 2 UNK, CYCLICAL
     Route: 065
     Dates: start: 2016
  5. OXALIPLATIN [Suspect]
     Active Substance: OXALIPLATIN
     Dosage: DESENSITISATION PROTOCOL
     Route: 065
     Dates: start: 2018
  6. IRINOTECAN [Suspect]
     Active Substance: IRINOTECAN
     Indication: Adenocarcinoma of colon
     Dosage: UNK
     Route: 065
     Dates: start: 2016
  7. FLUOROURACIL [Concomitant]
     Active Substance: FLUOROURACIL
     Indication: Adenocarcinoma of colon
     Dosage: UNK
     Route: 065
     Dates: start: 2014
  8. FLUOROURACIL [Concomitant]
     Active Substance: FLUOROURACIL
     Dosage: UNK
     Route: 065
     Dates: start: 2016
  9. LEUCOVORIN [Concomitant]
     Active Substance: LEUCOVORIN\LEUCOVORIN CALCIUM
     Indication: Adenocarcinoma of colon
     Dosage: UNK
     Route: 065
     Dates: start: 2014
  10. LEUCOVORIN [Concomitant]
     Active Substance: LEUCOVORIN\LEUCOVORIN CALCIUM
     Dosage: UNK
     Route: 065
     Dates: start: 2016
  11. BEVACIZUMAB [Concomitant]
     Active Substance: BEVACIZUMAB
     Indication: Adenocarcinoma of colon
     Dosage: 3 UNK, CYCLICAL
     Route: 065
  12. BEVACIZUMAB [Concomitant]
     Active Substance: BEVACIZUMAB
     Dosage: 3 UNK, CYCLICAL
     Route: 065
  13. BEVACIZUMAB [Concomitant]
     Active Substance: BEVACIZUMAB
     Dosage: 6 UNK, CYCLICAL
     Route: 065
  14. BEVACIZUMAB [Concomitant]
     Active Substance: BEVACIZUMAB
     Dosage: UNK
     Route: 065
     Dates: start: 2014
  15. BEVACIZUMAB [Concomitant]
     Active Substance: BEVACIZUMAB
     Dosage: 2 UNK, CYCLICAL
     Route: 065
     Dates: start: 2016

REACTIONS (3)
  - Anaphylactic reaction [Recovered/Resolved]
  - Disease progression [Unknown]
  - Hypersensitivity [Recovered/Resolved]
